FAERS Safety Report 7919149-1 (Version None)
Quarter: 2011Q4

REPORT INFORMATION
  Report Type: 
  Country: None (occurrence: None)
  Receive Date: 20111117
  Receipt Date: 20110922
  Transmission Date: 20120403
  Serious: Yes (Death, Life-Threatening, Hospitalization)
  Sender: FDA-Public Use
  Company Number: NL-ROCHE-GNE321214

PATIENT
  Sex: Male
  Weight: 74.079 kg

DRUGS (12)
  1. VALACYCLOVIR [Concomitant]
     Indication: VIRAL INFECTION
  2. FENAZEPAM [Concomitant]
     Indication: INSOMNIA
  3. DICLOFENAC SODIUM [Concomitant]
     Indication: PAIN
  4. VINCRISTINE [Suspect]
     Indication: B-CELL LYMPHOMA
     Dosage: 1 MG, UNK
     Dates: start: 20101111
  5. ALLOPURINOL [Concomitant]
     Indication: GOUT
  6. MABTHERA [Suspect]
     Indication: B-CELL LYMPHOMA
     Dosage: 710 MG, UNK
     Route: 042
     Dates: start: 20101111
  7. PREDNISONE TAB [Suspect]
     Indication: B-CELL LYMPHOMA
     Dosage: 500 MG, UNK
     Dates: start: 20101111
  8. CYCLOPHOSPHAMIDE [Suspect]
     Indication: B-CELL LYMPHOMA
     Dosage: 1430 MG, UNK
     Route: 042
     Dates: start: 20101111
  9. DOXORUBICIN HCL [Suspect]
     Indication: B-CELL LYMPHOMA
     Dosage: UNK
     Route: 042
     Dates: start: 20101111
  10. COTRIM [Concomitant]
     Indication: FUNGAL INFECTION
     Dates: start: 20101111
  11. NEULASTA [Suspect]
     Indication: B-CELL LYMPHOMA
     Dosage: 6 MG, UNK
  12. ONDANSETRON [Concomitant]
     Indication: NAUSEA
     Route: 048
     Dates: start: 20110120, end: 20110122

REACTIONS (2)
  - FEBRILE NEUTROPENIA [None]
  - PNEUMONIA [None]
